FAERS Safety Report 23138737 (Version 1)
Quarter: 2023Q4

REPORT INFORMATION
  Report Type: Spontaneous
  Country: DE (occurrence: DE)
  Receive Date: 20231102
  Receipt Date: 20231102
  Transmission Date: 20240109
  Serious: Yes (Hospitalization, Other)
  Sender: FDA-Public Use
  Company Number: DE-TEVA-2023-DE-2942397

PATIENT
  Age: 17 Year
  Sex: Male
  Weight: 63 kg

DRUGS (1)
  1. METHYLPHENIDATE [Suspect]
     Active Substance: METHYLPHENIDATE
     Indication: Attention deficit hyperactivity disorder
     Dosage: 36 MILLIGRAM DAILY; FORM STRENGTH: 36MILLIGRAM
     Route: 065
     Dates: start: 20230828

REACTIONS (11)
  - Pneumonia aspiration [Unknown]
  - Pneumonia [Unknown]
  - Abdominal compartment syndrome [Unknown]
  - Seizure [Unknown]
  - Arteriospasm coronary [Unknown]
  - Ileus paralytic [Unknown]
  - Post intensive care syndrome [Unknown]
  - Procedural complication [Unknown]
  - Acute respiratory distress syndrome [Unknown]
  - Septic shock [Unknown]
  - Resuscitation [Unknown]

NARRATIVE: CASE EVENT DATE: 20230828
